FAERS Safety Report 7766062-9 (Version None)
Quarter: 2011Q3

REPORT INFORMATION
  Report Type: 
  Country: None (occurrence: None)
  Receive Date: 20110921
  Receipt Date: 20110912
  Transmission Date: 20111222
  Serious: Yes (Other)
  Sender: FDA-Public Use
  Company Number: US-ASTRAZENECA-2011SE51921

PATIENT
  Age: 87 Year
  Sex: Female

DRUGS (14)
  1. VESICARE [Concomitant]
     Route: 048
  2. DIAZEPAM [Concomitant]
     Indication: DEPRESSION
     Route: 048
  3. LOVASTATIN [Concomitant]
     Indication: BLOOD CHOLESTEROL ABNORMAL
     Route: 048
  4. XANAX [Concomitant]
  5. CYCLOPHOSPHAMIDE [Concomitant]
     Indication: PAIN
     Dosage: 10 MG, THREE TIMES A DAY, AS NEEDED
     Route: 048
  6. DIAZEPAM [Concomitant]
     Indication: NERVOUSNESS
     Route: 048
  7. FUROSEMIDE [Concomitant]
     Indication: OEDEMA
     Dosage: 40 MG, EVERY MORNING, AS NEEDED
     Route: 048
  8. PRISTIQ [Concomitant]
     Route: 048
  9. HYDROCODEN/APAP [Concomitant]
     Indication: ARTHRITIS
  10. CYCLOPHOSPHAMIDE [Concomitant]
     Indication: MUSCLE SPASMS
     Dosage: 10 MG, THREE TIMES A DAY, AS NEEDED
     Route: 048
  11. VICODIN [Concomitant]
     Indication: PAIN
     Dosage: 5-500 MG, 1 TABLET FOUR TIMES A DAY AS NEEDED
     Route: 048
  12. SEROQUEL [Suspect]
     Indication: SLEEP DISORDER
     Route: 048
     Dates: start: 20100101
  13. POTASSIUM CITRATE [Concomitant]
     Route: 048
  14. PRISTIQ [Concomitant]
     Indication: DEPRESSION
     Route: 048

REACTIONS (18)
  - VISION BLURRED [None]
  - OFF LABEL USE [None]
  - STRESS URINARY INCONTINENCE [None]
  - PAIN IN EXTREMITY [None]
  - CONTUSION [None]
  - INTERVERTEBRAL DISC DISORDER [None]
  - MICTURITION URGENCY [None]
  - HYPERTENSION [None]
  - ANXIETY [None]
  - MUSCULOSKELETAL PAIN [None]
  - DIZZINESS [None]
  - ROAD TRAFFIC ACCIDENT [None]
  - HYPERTHYROIDISM [None]
  - MUSCULOSKELETAL CHEST PAIN [None]
  - ARRHYTHMIA [None]
  - BACK PAIN [None]
  - HEARING IMPAIRED [None]
  - DEPRESSION [None]
